FAERS Safety Report 11468271 (Version 1)
Quarter: 2015Q3

REPORT INFORMATION
  Report Type: Spontaneous
  Country: US (occurrence: None)
  Receive Date: 20150904
  Receipt Date: 20150904
  Transmission Date: 20151125
  Serious: No
  Sender: FDA-Public Use
  Company Number: None

PATIENT
  Age: 29 Year
  Sex: Female
  Weight: 63.5 kg

DRUGS (2)
  1. LEVOTHYROXINE SODIUM. [Suspect]
     Active Substance: LEVOTHYROXINE SODIUM
     Indication: THYROID DISORDER
     Dosage: 75 MCG 3X/WK AND 50 MCG 3X/WK
     Route: 048
     Dates: start: 20150606, end: 20150901
  2. WOMEN^S MULTIVITAMIN [Concomitant]

REACTIONS (2)
  - Heart rate irregular [None]
  - Palpitations [None]

NARRATIVE: CASE EVENT DATE: 20150901
